FAERS Safety Report 6762764-1 (Version None)
Quarter: 2010Q2

REPORT INFORMATION
  Report Type: 
  Country: None (occurrence: None)
  Receive Date: 20100609
  Receipt Date: 20100524
  Transmission Date: 20101027
  Serious: Yes (Life-Threatening, Hospitalization)
  Sender: FDA-Public Use
  Company Number: B0609090A

PATIENT
  Sex: Female

DRUGS (4)
  1. VALTREX [Suspect]
     Indication: HERPES ZOSTER
     Dosage: 3000MG PER DAY
     Route: 048
     Dates: start: 20091118, end: 20091121
  2. NORVASC [Concomitant]
     Dosage: 2.5MG PER DAY
     Route: 048
     Dates: start: 20091113, end: 20091121
  3. CYANOCOBALAMIN [Concomitant]
     Dosage: 500MCG PER DAY
     Route: 048
     Dates: start: 20091118, end: 20091121
  4. ACYCLOVIR [Concomitant]
     Dosage: 125MG PER DAY
     Dates: start: 20091121, end: 20091121

REACTIONS (3)
  - ALTERED STATE OF CONSCIOUSNESS [None]
  - ENCEPHALOPATHY [None]
  - RENAL FAILURE ACUTE [None]
